FAERS Safety Report 16843699 (Version 2)
Quarter: 2020Q3

REPORT INFORMATION
  Report Type: Spontaneous
  Country: US (occurrence: US)
  Receive Date: 20190924
  Receipt Date: 20200828
  Transmission Date: 20201102
  Serious: Yes (Death, Other)
  Sender: FDA-Public Use
  Company Number: US-GILEAD-2019-0429555

PATIENT
  Age: 66 Year
  Sex: Male

DRUGS (25)
  1. BENZONATATE. [Concomitant]
     Active Substance: BENZONATATE
  2. HYDROCHLOROTHIAZIDE. [Concomitant]
     Active Substance: HYDROCHLOROTHIAZIDE
  3. TRAMADOL. [Concomitant]
     Active Substance: TRAMADOL
  4. INSULIN [Concomitant]
     Active Substance: INSULIN NOS
  5. VITAMIN D [COLECALCIFEROL] [Concomitant]
     Active Substance: CHOLECALCIFEROL
  6. TIVICAY [Concomitant]
     Active Substance: DOLUTEGRAVIR SODIUM
  7. ZIAGEN [Concomitant]
     Active Substance: ABACAVIR SULFATE
  8. NYSTATIN. [Concomitant]
     Active Substance: NYSTATIN
  9. VIREAD [Suspect]
     Active Substance: TENOFOVIR DISOPROXIL FUMARATE
     Indication: HIV INFECTION
     Dosage: UNK
     Route: 048
     Dates: start: 20100107, end: 20100207
  10. NOVIR [ENTECAVIR] [Concomitant]
  11. REYATAZ [Concomitant]
     Active Substance: ATAZANAVIR SULFATE
  12. LISINOPRIL. [Concomitant]
     Active Substance: LISINOPRIL
  13. TRICOR [Concomitant]
     Active Substance: FENOFIBRATE
  14. TRUVADA [Suspect]
     Active Substance: EMTRICITABINE\TENOFOVIR DISOPROXIL FUMARATE
     Indication: HIV INFECTION
     Dosage: UNK
     Route: 048
     Dates: start: 2010
  15. INTELENCE [Concomitant]
     Active Substance: ETRAVIRINE
  16. CLONIDINE. [Concomitant]
     Active Substance: CLONIDINE
  17. ATENOLOL. [Concomitant]
     Active Substance: ATENOLOL
  18. GABAPENTIN. [Concomitant]
     Active Substance: GABAPENTIN
  19. OMEPRAZOLE. [Concomitant]
     Active Substance: OMEPRAZOLE
  20. AMOXICILLIN. [Concomitant]
     Active Substance: AMOXICILLIN
  21. ABACAVIR. [Concomitant]
     Active Substance: ABACAVIR
  22. NOVOLOG [Concomitant]
     Active Substance: INSULIN ASPART
  23. VERAPAMIL [Concomitant]
     Active Substance: VERAPAMIL HYDROCHLORIDE
  24. AMITRIPTYLINE [Concomitant]
     Active Substance: AMITRIPTYLINE
  25. MELOXICAM. [Concomitant]
     Active Substance: MELOXICAM

REACTIONS (7)
  - Renal failure [Fatal]
  - Anxiety [Not Recovered/Not Resolved]
  - Economic problem [Not Recovered/Not Resolved]
  - Anhedonia [Not Recovered/Not Resolved]
  - Chronic kidney disease [Fatal]
  - Emotional distress [Not Recovered/Not Resolved]
  - Pain [Not Recovered/Not Resolved]

NARRATIVE: CASE EVENT DATE: 2010
